FAERS Safety Report 12406596 (Version 1)
Quarter: 2016Q2

REPORT INFORMATION
  Report Type: Spontaneous
  Country: GB (occurrence: GB)
  Receive Date: 20160526
  Receipt Date: 20160526
  Transmission Date: 20160815
  Serious: Yes (Hospitalization)
  Sender: FDA-Public Use
  Company Number: GB-TEVA-662851ACC

PATIENT
  Age: 40 Year
  Sex: Female
  Weight: 72 kg

DRUGS (2)
  1. NAPROXEN. [Suspect]
     Active Substance: NAPROXEN
     Indication: ARTHRALGIA
     Dosage: 1000 MILLIGRAM DAILY; AS NEEDED
     Route: 048
     Dates: start: 2013, end: 20160508
  2. FEMODENE [Suspect]
     Active Substance: ETHINYL ESTRADIOL\GESTODENE
     Indication: CONTRACEPTION
     Dosage: 1 DOSAGE FORMS DAILY; FOR 21 DAYS PER CYCLE
     Route: 048
     Dates: start: 2012, end: 20160508

REACTIONS (3)
  - Chest pain [Unknown]
  - Dyspnoea [Unknown]
  - Pulmonary embolism [Recovering/Resolving]

NARRATIVE: CASE EVENT DATE: 20160424
